FAERS Safety Report 24888107 (Version 2)
Quarter: 2025Q1

REPORT INFORMATION
  Report Type: Report from Study
  Country: US (occurrence: US)
  Receive Date: 20250127
  Receipt Date: 20250227
  Transmission Date: 20250408
  Serious: No
  Sender: BIOVITRUM
  Company Number: US-BIOVITRUM-2025-US-000241

PATIENT
  Age: 6 Year
  Sex: Female

DRUGS (2)
  1. KINERET [Suspect]
     Active Substance: ANAKINRA
     Indication: Still^s disease
     Route: 058
     Dates: start: 20240305
  2. KINERET [Suspect]
     Active Substance: ANAKINRA
     Route: 058
     Dates: start: 20250102

REACTIONS (13)
  - Injection site pain [Unknown]
  - Needle issue [Unknown]
  - Off label use [Not Recovered/Not Resolved]
  - Headache [Unknown]
  - Ear discomfort [Unknown]
  - Injection site bruising [Unknown]
  - Crying [Unknown]
  - Fatigue [Unknown]
  - Decreased appetite [Unknown]
  - Still^s disease [Not Recovered/Not Resolved]
  - Condition aggravated [Not Recovered/Not Resolved]
  - Pain [Unknown]
  - Product dose omission issue [Unknown]

NARRATIVE: CASE EVENT DATE: 20240305
